FAERS Safety Report 23913914 (Version 2)
Quarter: 2024Q2

REPORT INFORMATION
  Report Type: Spontaneous
  Country: CN (occurrence: None)
  Receive Date: 20240529
  Receipt Date: 20240604
  Transmission Date: 20240715
  Serious: Yes (Death)
  Sender: FDA-Public Use
  Company Number: CN-ROCHE-3569824

PATIENT
  Sex: Male

DRUGS (2)
  1. MABTHERA [Suspect]
     Active Substance: RITUXIMAB
     Indication: Follicular lymphoma
     Route: 065
  2. GAZYVA [Suspect]
     Active Substance: OBINUTUZUMAB
     Indication: Follicular lymphoma
     Dosage: OBINUTUZUMAB + PI3K INHIBITOR (NON-ROCHE PRODUCT, UNKNOWN DETAILS)
     Route: 042

REACTIONS (4)
  - Pneumonia [Fatal]
  - Off label use [Unknown]
  - Myelosuppression [Unknown]
  - Disease progression [Unknown]

NARRATIVE: CASE EVENT DATE: 20240522
